FAERS Safety Report 26197157 (Version 1)
Quarter: 2025Q4

REPORT INFORMATION
  Report Type: Spontaneous
  Country: EU (occurrence: EU)
  Receive Date: 20251224
  Receipt Date: 20251224
  Transmission Date: 20260118
  Serious: Yes (Other)
  Sender: ALKEM
  Company Number: EU-ALKEM LABORATORIES LIMITED-AT-ALKEM-2025-13363

PATIENT
  Age: 38 Year
  Sex: Female

DRUGS (3)
  1. SIROLIMUS [Suspect]
     Active Substance: SIROLIMUS
     Indication: Rhabdomyoma
     Dosage: 6 MILLIGRAM (LOADING DOSE)
     Route: 048
  2. SIROLIMUS [Suspect]
     Active Substance: SIROLIMUS
     Indication: Foetal cardiac disorder
     Dosage: 2 MILLIGRAM, QD
     Route: 048
  3. SIROLIMUS [Suspect]
     Active Substance: SIROLIMUS
     Dosage: 16 MILLIGRAM (INCREASED DOSE)
     Route: 048

REACTIONS (4)
  - Gestational diabetes [Recovered/Resolved]
  - Exposure during pregnancy [Unknown]
  - Drug level decreased [Unknown]
  - Productive cough [Recovered/Resolved]
